FAERS Safety Report 4339886-8 (Version None)
Quarter: 2004Q2

REPORT INFORMATION
  Report Type: 
  Country: None (occurrence: None)
  Receive Date: 20040414
  Receipt Date: 20040414
  Transmission Date: 20050107
  Serious: Yes (Hospitalization)
  Sender: FDA-Public Use
  Company Number: None

PATIENT
  Age: 69 Year
  Sex: Male
  Weight: 84.3237 kg

DRUGS (15)
  1. HETASTARCH 6% IN 0.9% SODIUM CHLORIDE IN PLASTIC CONTAINER [Suspect]
     Indication: VOLUME BLOOD DECREASED
     Dosage: 500 ML IV X 3
     Route: 042
     Dates: start: 20040226
  2. RED BLOOD CELLS [Concomitant]
  3. ASPIRIN [Concomitant]
  4. CALCIUM GLUCONATE [Concomitant]
  5. CEFAZOLIN [Concomitant]
  6. FUROSEMIDE [Concomitant]
  7. LISINOPRIL [Concomitant]
  8. MAGNESIUM SULFATE [Concomitant]
  9. LOVASTATIN [Concomitant]
  10. RANITIDINE [Concomitant]
  11. SENNA [Concomitant]
  12. SODIUM POLYSTYRENE SULFONATE [Concomitant]
  13. KCL TAB [Concomitant]
  14. MORPHINE [Concomitant]
  15. ALBUTEROL [Concomitant]

REACTIONS (4)
  - ANAEMIA [None]
  - COAGULOPATHY [None]
  - DISSEMINATED INTRAVASCULAR COAGULATION [None]
  - THROMBOCYTOPENIA [None]
